FAERS Safety Report 5694146-8 (Version None)
Quarter: 2008Q2

REPORT INFORMATION
  Report Type: 
  Country: None (occurrence: None)
  Receive Date: 20080402
  Receipt Date: 20080327
  Transmission Date: 20081010
  Serious: Yes (Death, Other)
  Sender: FDA-Public Use
  Company Number: 163-21880-08031398

PATIENT
  Age: 60 Year
  Sex: Male

DRUGS (1)
  1. REVLIMID [Suspect]
     Indication: MYELOFIBROSIS
     Dosage: 5 MG, Q2D, ORAL
     Route: 048
     Dates: start: 20071218

REACTIONS (3)
  - HEADACHE [None]
  - RASH PUSTULAR [None]
  - RASH VESICULAR [None]
